FAERS Safety Report 11364854 (Version 1)
Quarter: 2015Q3

REPORT INFORMATION
  Report Type: Other
  Country: CA (occurrence: CA)
  Receive Date: 20150811
  Receipt Date: 20150811
  Transmission Date: 20151125
  Serious: Yes (Other)
  Sender: FDA-Public Use
  Company Number: CA-APOTEX-2015AP011074

PATIENT

DRUGS (1)
  1. APO-LORATADINE [Suspect]
     Active Substance: LORATADINE
     Indication: SEASONAL ALLERGY
     Dosage: 10 MG, BID
     Route: 048

REACTIONS (4)
  - Somnolence [Recovered/Resolved]
  - Condition aggravated [Recovered/Resolved]
  - Overdose [Recovered/Resolved]
  - Confusional state [Recovered/Resolved]
